FAERS Safety Report 12852070 (Version 1)
Quarter: 2016Q4

REPORT INFORMATION
  Report Type: Spontaneous
  Country: US (occurrence: US)
  Receive Date: 20161014
  Receipt Date: 20161014
  Transmission Date: 20170207
  Serious: Yes (Hospitalization, Other)
  Sender: FDA-Public Use
  Company Number: None

PATIENT
  Age: 42 Year
  Sex: Male
  Weight: 125.6 kg

DRUGS (1)
  1. ISOVUE [Suspect]
     Active Substance: IOPAMIDOL
     Indication: COMPUTERISED TOMOGRAM ABDOMEN
     Dosage: ?          OTHER FREQUENCY:ONE TIME;?INTRAVENOUS (NOT OTHERWISE SPECIFIED) ?
     Route: 042

REACTIONS (3)
  - Nephropathy toxic [None]
  - Blood creatinine increased [None]
  - Contrast media reaction [None]

NARRATIVE: CASE EVENT DATE: 20161006
